FAERS Safety Report 9411181 (Version 1)
Quarter: 2013Q3

REPORT INFORMATION
  Report Type: Spontaneous
  Country: US (occurrence: US)
  Receive Date: 20130721
  Receipt Date: 20130721
  Transmission Date: 20140515
  Serious: No
  Sender: FDA-Public Use
  Company Number: US-009507513-1307USA007925

PATIENT
  Sex: Female

DRUGS (3)
  1. VICTRELIS [Suspect]
     Indication: HEPATITIS C
     Dosage: 800 MG, Q8H
     Route: 048
  2. REBETOL [Suspect]
     Indication: HEPATITIS C
     Dosage: 200 MG CAPSULES IN THE MORNING AND 3 CAPSULES IN THE EVENING
  3. PEGINTRON [Suspect]
     Indication: HEPATITIS C
     Dosage: REDIPEN 120 WEEKLY INJECTION

REACTIONS (1)
  - No therapeutic response [Not Recovered/Not Resolved]
